FAERS Safety Report 6353582 (Version 1)
Quarter: 2020Q3

REPORT INFORMATION
  Report Type: Report from Study
  Country: DE (occurrence: DE)
  Receive Date: 20070613
  Receipt Date: 20070613
  Transmission Date: 20201104
  Serious: Yes (Other)
  Sender: FDA-Public Use
  Company Number: DEWYE790127FEB07

PATIENT
  Age: 52 Year
  Sex: Male
  Weight: 102 kg

DRUGS (5)
  1. GABAPENTIN. [Concomitant]
     Active Substance: GABAPENTIN
     Indication: PAIN
     Dosage: UNKNOWN
     Dates: start: 20060101
  2. TEMSIROLIMUS. [Suspect]
     Active Substance: TEMSIROLIMUS
     Indication: RENAL CELL CARCINOMA
     Route: 042
     Dates: start: 20070207
  3. ZOLEDRONATE [Concomitant]
     Active Substance: ZOLEDRONIC ACID
     Indication: METASTASES TO BONE
     Dosage: UNKNOWN
     Dates: start: 20060101
  4. MORPHINE SULFATE. [Concomitant]
     Active Substance: MORPHINE SULFATE
     Indication: PAIN
     Dosage: UNKNOWN
     Dates: start: 20060101
  5. METAMIZOLE [Concomitant]
     Active Substance: METAMIZOLE
     Indication: PAIN
     Dosage: UNKNOWN
     Dates: start: 20060101

REACTIONS (5)
  - Blood lactate dehydrogenase increased [Unknown]
  - Stomatitis [Recovered/Resolved]
  - Pyrexia [Unknown]
  - Bone pain [Unknown]
  - C-reactive protein increased [Unknown]

NARRATIVE: CASE EVENT DATE: 20070223
